FAERS Safety Report 21693925 (Version 1)
Quarter: 2022Q4

REPORT INFORMATION
  Report Type: Spontaneous
  Country: RU (occurrence: None)
  Receive Date: 20221207
  Receipt Date: 20221207
  Transmission Date: 20230112
  Serious: Yes (Other)
  Sender: FDA-Public Use
  Company Number: RU-ROCHE-3230830

PATIENT
  Sex: Female

DRUGS (3)
  1. TECENTRIQ [Suspect]
     Active Substance: ATEZOLIZUMAB
     Indication: Metastatic malignant melanoma
     Route: 042
  2. COTELLIC [Suspect]
     Active Substance: COBIMETINIB
     Indication: Metastatic malignant melanoma
     Route: 048
  3. ZELBORAF [Suspect]
     Active Substance: VEMURAFENIB
     Indication: Metastatic malignant melanoma
     Route: 065

REACTIONS (1)
  - Syncope [Unknown]
